FAERS Safety Report 9096987 (Version 2)
Quarter: 2013Q1

REPORT INFORMATION
  Report Type: Spontaneous
  Country: US (occurrence: None)
  Receive Date: 20130124
  Receipt Date: 20130307
  Transmission Date: 20140127
  Serious: Yes (Other)
  Sender: FDA-Public Use
  Company Number: 2013SA002278

PATIENT
  Age: 56 Year
  Sex: Female
  Weight: 52.6 kg

DRUGS (1)
  1. CAPZASIN [Suspect]
     Indication: PAIN
     Route: 061
     Dates: start: 20130106, end: 20130106

REACTIONS (2)
  - Dermatitis contact [None]
  - Application site pain [None]
